FAERS Safety Report 8478586-X (Version None)
Quarter: 2012Q2

REPORT INFORMATION
  Report Type: 
  Country: None (occurrence: None)
  Receive Date: 20120629
  Receipt Date: 20120627
  Transmission Date: 20120825
  Serious: Yes (Death)
  Sender: FDA-Public Use
  Company Number: PHHY2012DK055171

PATIENT
  Sex: Male

DRUGS (3)
  1. PREDNISOLONE [Suspect]
     Indication: RHEUMATOID ARTHRITIS
     Route: 065
     Dates: start: 20020404
  2. METHOTREXATE [Suspect]
     Indication: RHEUMATOID ARTHRITIS
     Dates: start: 20020404
  3. ACTEMRA [Suspect]
     Indication: RHEUMATOID ARTHRITIS
     Dosage: 560 MG HVER 4. UGE
     Route: 042
     Dates: start: 20100801, end: 20120223

REACTIONS (4)
  - CARDIAC FAILURE [None]
  - STAPHYLOCOCCAL INFECTION [None]
  - PNEUMONIA [None]
  - SEPSIS [None]
